FAERS Safety Report 9997674 (Version 4)
Quarter: 2014Q2

REPORT INFORMATION
  Report Type: Report from Study
  Country: US (occurrence: US)
  Receive Date: 20140311
  Receipt Date: 20140422
  Transmission Date: 20141212
  Serious: Yes (Other)
  Sender: FDA-Public Use
  Company Number: PHEH2014US004821

PATIENT
  Sex: Female
  Weight: 114.29 kg

DRUGS (18)
  1. TASIGNA [Suspect]
     Indication: CHRONIC MYELOID LEUKAEMIA
     Dosage: 300 MG, BID
     Route: 048
     Dates: start: 20140217
  2. COREG [Concomitant]
  3. ECOTRIN [Concomitant]
  4. LASIX [Concomitant]
  5. LEXAPRO [Concomitant]
  6. LIPITOR [Concomitant]
  7. LOSARTAN [Concomitant]
  8. MULTIVITAMIN [Concomitant]
  9. SYNTHROID [Concomitant]
  10. ASPIRIN [Concomitant]
     Dosage: UNK UKN, UNK
  11. MELOXICAM [Concomitant]
     Dosage: UNK UKN, UNK
  12. ATORVASTATIN [Concomitant]
     Dosage: UNK UKN, UNK
  13. ESCITALOPRAM OXALATE [Concomitant]
     Dosage: UNK UKN, UNK
  14. FUROSEMIDE [Concomitant]
     Dosage: UNK UKN, UNK
  15. POTASSIUM [Concomitant]
     Dosage: UNK UKN, UNK
  16. CARVEDIOL [Concomitant]
     Dosage: UNK UKN, UNK
  17. FLEXERIL [Concomitant]
  18. HYDROXYZINE [Concomitant]
     Dosage: UNK UKN, UNK

REACTIONS (8)
  - Intervertebral disc protrusion [Unknown]
  - Abdominal discomfort [Unknown]
  - Pain [Recovering/Resolving]
  - Anxiety [Unknown]
  - Muscle strain [Unknown]
  - Panic attack [Unknown]
  - Fatigue [Recovering/Resolving]
  - Musculoskeletal pain [Unknown]
